FAERS Safety Report 14753189 (Version 3)
Quarter: 2018Q2

REPORT INFORMATION
  Report Type: Spontaneous
  Country: GB (occurrence: GB)
  Receive Date: 20180412
  Receipt Date: 20180524
  Transmission Date: 20180711
  Serious: Yes (Life-Threatening, Hospitalization)
  Sender: FDA-Public Use
  Company Number: GB-SA-2018SA105161

PATIENT
  Sex: Female
  Weight: 1.6 kg

DRUGS (7)
  1. FOLIC ACID. [Concomitant]
     Active Substance: FOLIC ACID
     Dosage: UNK
     Dates: start: 20170102
  2. LANTUS [Suspect]
     Active Substance: INSULIN GLARGINE
     Indication: MATERNAL EXPOSURE TIMING UNSPECIFIED
     Dosage: 16 DF,QD
     Route: 064
     Dates: start: 20110315
  3. THYROXINE [Concomitant]
     Active Substance: LEVOTHYROXINE
     Dosage: UNK
     Dates: start: 20120410
  4. ASPIRIN (E.C.) [Concomitant]
     Active Substance: ASPIRIN
  5. LANTUS [Suspect]
     Active Substance: INSULIN GLARGINE
     Dosage: 30 DF,QD
     Route: 064
  6. BETAMETHASONE. [Concomitant]
     Active Substance: BETAMETHASONE
     Dosage: UNK
     Dates: start: 20180301, end: 20180302
  7. NOVORAPID [Suspect]
     Active Substance: INSULIN ASPART
     Indication: TYPE 1 DIABETES MELLITUS
     Dosage: 20 DF,QD
     Route: 064
     Dates: start: 20110315

REACTIONS (3)
  - Foetal exposure during pregnancy [Unknown]
  - Low birth weight baby [Unknown]
  - Premature baby [Unknown]

NARRATIVE: CASE EVENT DATE: 20110315
